FAERS Safety Report 13522058 (Version 4)
Quarter: 2017Q4

REPORT INFORMATION
  Report Type: Spontaneous
  Country: US (occurrence: US)
  Receive Date: 20170508
  Receipt Date: 20171009
  Transmission Date: 20180320
  Serious: No
  Sender: FDA-Public Use
  Company Number: US-ASTRAZENECA-2017SE47306

PATIENT
  Age: 836 Month
  Sex: Female

DRUGS (4)
  1. SYMBICORT [Suspect]
     Active Substance: BUDESONIDE\FORMOTEROL FUMARATE DIHYDRATE
     Indication: EMPHYSEMA
     Dosage: 2 PUFFS TWO TIMES A DAY
     Route: 055
  2. BEVESPI AEROSPHERE [Suspect]
     Active Substance: FORMOTEROL FUMARATE\GLYCOPYRROLATE
     Indication: EMPHYSEMA
     Dosage: 9/4.8 UG, TWO PUFFS TWICE A DAY
     Route: 055
  3. LOVASTATIN. [Concomitant]
     Active Substance: LOVASTATIN
  4. SYNTHROID [Concomitant]
     Active Substance: LEVOTHYROXINE SODIUM

REACTIONS (13)
  - Off label use [Unknown]
  - Dyspnoea [Unknown]
  - Palpitations [Unknown]
  - Device use issue [Unknown]
  - Underdose [Unknown]
  - Oropharyngeal discomfort [Unknown]
  - Wrong technique in device usage process [Unknown]
  - Product use issue [Unknown]
  - Dizziness [Unknown]
  - Drug dose omission [Unknown]
  - Disturbance in attention [Unknown]
  - Product quality issue [Unknown]
  - Cough [Not Recovered/Not Resolved]

NARRATIVE: CASE EVENT DATE: 201704
